FAERS Safety Report 13337354 (Version 2)
Quarter: 2017Q2

REPORT INFORMATION
  Report Type: Report from Study
  Country: US (occurrence: US)
  Receive Date: 20170315
  Receipt Date: 20170424
  Transmission Date: 20170830
  Serious: Yes (Hospitalization, Other)
  Sender: FDA-Public Use
  Company Number: US-ROCHE-1900977

PATIENT
  Age: 72 Year
  Sex: Female
  Weight: 77.18 kg

DRUGS (8)
  1. AMLODIPINE BESILATE [Concomitant]
     Active Substance: AMLODIPINE BESYLATE
     Dosage: BEEN TAKING FOR A COUPLE OF YEARS. ;ONGOING: YES
     Route: 048
  2. XOLAIR [Suspect]
     Active Substance: OMALIZUMAB
     Indication: ASTHMA
     Route: 058
     Dates: start: 201610, end: 20170126
  3. XOLAIR [Suspect]
     Active Substance: OMALIZUMAB
     Route: 058
  4. METHIMAZOLE. [Concomitant]
     Active Substance: METHIMAZOLE
     Indication: ASTHMA
     Dosage: HALF OF A 5MG TABLET ONCE A DAY. ;ONGOING: YES
     Route: 048
     Dates: start: 201611
  5. QVAR [Concomitant]
     Active Substance: BECLOMETHASONE DIPROPIONATE
     Indication: ASTHMA
     Dosage: BEEN TAKING 2 PUFFS TWICE A DAY FOR YEARS. ;ONGOING: YES
     Route: 055
  6. PRAMIPEXOLE. [Concomitant]
     Active Substance: PRAMIPEXOLE
     Indication: NEUROPATHY PERIPHERAL
     Dosage: BEEN TAKING IT FOR SEVERAL YEARS. ;ONGOING: YES
     Route: 048
  7. XOLAIR [Suspect]
     Active Substance: OMALIZUMAB
     Route: 058
     Dates: end: 20170308
  8. MONTELUKAST [Concomitant]
     Active Substance: MONTELUKAST SODIUM
     Indication: ASTHMA
     Dosage: ONGOING:YES
     Route: 048
     Dates: start: 2014

REACTIONS (20)
  - Peripheral swelling [Unknown]
  - Cerebral disorder [Recovered/Resolved]
  - Malaise [Unknown]
  - Dizziness [Recovered/Resolved]
  - Somnolence [Not Recovered/Not Resolved]
  - Blood sodium decreased [Recovered/Resolved]
  - Decreased appetite [Recovering/Resolving]
  - Peripheral swelling [Not Recovered/Not Resolved]
  - Cough [Not Recovered/Not Resolved]
  - Rash [Not Recovered/Not Resolved]
  - White blood cell count decreased [Recovered/Resolved with Sequelae]
  - Fatigue [Recovering/Resolving]
  - Fatigue [Recovered/Resolved with Sequelae]
  - Dizziness [Recovered/Resolved]
  - Cerebral disorder [Recovered/Resolved]
  - Malaise [Recovered/Resolved]
  - Blood potassium decreased [Recovered/Resolved]
  - Balance disorder [Not Recovered/Not Resolved]
  - Headache [Recovered/Resolved]
  - White blood cell count decreased [Recovered/Resolved]

NARRATIVE: CASE EVENT DATE: 201610
